FAERS Safety Report 25173247 (Version 2)
Quarter: 2025Q2

REPORT INFORMATION
  Report Type: Spontaneous
  Country: FR (occurrence: FR)
  Receive Date: 20250408
  Receipt Date: 20250422
  Transmission Date: 20250716
  Serious: Yes (Other)
  Sender: BAYER HEALTHCARE PHARMACEUTICALS INC.
  Company Number: FR-BAYER-2025A047270

PATIENT
  Age: 69 Year
  Sex: Male

DRUGS (5)
  1. NUBEQA [Suspect]
     Active Substance: DAROLUTAMIDE
     Indication: Product used for unknown indication
     Route: 048
  2. ENANTONE LP [Concomitant]
     Active Substance: LEUPROLIDE ACETATE
  3. AMLODIPINE [Concomitant]
     Active Substance: AMLODIPINE BESYLATE
     Dosage: 10 MG, QD
  4. PERINDOPRIL [Concomitant]
     Active Substance: PERINDOPRIL
     Dosage: 2 MG, QD, 1 CP IN THE MORNING. (2 MG,1 D)
  5. METHYLDOPA [Concomitant]
     Active Substance: METHYLDOPA
     Dosage: 6.5 MG, QD,  1 CP IN THE MORNING. (6.5 MG,1 D)

REACTIONS (4)
  - Road traffic accident [Unknown]
  - Somnolence [Unknown]
  - Asthenia [Not Recovered/Not Resolved]
  - Malaise [Not Recovered/Not Resolved]

NARRATIVE: CASE EVENT DATE: 20250201
